FAERS Safety Report 7795839-9 (Version None)
Quarter: 2011Q4

REPORT INFORMATION
  Report Type: 
  Country: None (occurrence: None)
  Receive Date: 20111004
  Receipt Date: 20110818
  Transmission Date: 20120403
  Serious: Yes (Other)
  Sender: FDA-Public Use
  Company Number: PHHO2011BE08809

PATIENT

DRUGS (7)
  1. FLUOROURACIL [Suspect]
  2. LORMETAZEPAM [Concomitant]
     Dosage: 2 MG, QD
     Route: 048
     Dates: start: 20080910
  3. EPIRUBICIN [Suspect]
  4. CALCIUM CARBONATE [Concomitant]
     Dosage: 1 G, QD
     Route: 048
     Dates: start: 20100511
  5. CYCLOPHOSPHAMIDE [Suspect]
  6. LETROZOLE [Suspect]
     Indication: BREAST CANCER
     Dosage: 2.5 MG, QD
     Route: 048
     Dates: start: 20110318
  7. VITAMIN D [Concomitant]
     Dosage: UNK
     Route: 048
     Dates: start: 20100511

REACTIONS (2)
  - NEOPLASM MALIGNANT [None]
  - ACUTE MYELOID LEUKAEMIA [None]
